FAERS Safety Report 9974568 (Version 1)
Quarter: 2014Q1

REPORT INFORMATION
  Report Type: Report from Study
  Country: US (occurrence: US)
  Receive Date: 20140306
  Receipt Date: 20140306
  Transmission Date: 20141002
  Serious: No
  Sender: FDA-Public Use
  Company Number: US-ABBVIE-13P-163-1157288-00

PATIENT
  Age: 44 Year
  Sex: Female
  Weight: 54.48 kg

DRUGS (5)
  1. HUMIRA [Suspect]
     Indication: CROHN^S DISEASE
     Route: 058
     Dates: start: 2007, end: 201302
  2. HUMIRA [Suspect]
     Route: 058
     Dates: start: 201306
  3. YAZ [Concomitant]
     Indication: CONTRACEPTION
  4. SINGULAIR [Concomitant]
     Indication: ASTHMA
  5. ADVAIR [Concomitant]
     Indication: ASTHMA

REACTIONS (1)
  - Staphylococcal infection [Recovered/Resolved]
